FAERS Safety Report 4959718-4 (Version None)
Quarter: 2006Q1

REPORT INFORMATION
  Report Type: 
  Country: None (occurrence: None)
  Receive Date: 20060331
  Receipt Date: 20040708
  Transmission Date: 20060701
  Serious: Yes (Death, Hospitalization, Other)
  Sender: FDA-Public Use
  Company Number: PHBS2004JP09259

PATIENT
  Age: 64 Year
  Sex: Male

DRUGS (6)
  1. ALLOPURINOL [Suspect]
     Route: 048
     Dates: start: 20040501
  2. FLUITRAN [Concomitant]
     Route: 048
  3. PERDIPINE LA [Suspect]
     Dosage: 80 MG/DAY
     Route: 048
  4. DIOVAN [Suspect]
     Indication: HYPERTENSION
     Dosage: 40 MG/DAY
     Route: 048
     Dates: start: 20040501
  5. ANTIPRURITICS AND ANAESTHETICS LOCALLY [Suspect]
     Route: 042
  6. ANTIINFLAMMATORY/ANTIRHEUMATIC PRODUCTS [Suspect]

REACTIONS (6)
  - BLOOD URIC ACID INCREASED [None]
  - ECZEMA [None]
  - MULTI-ORGAN FAILURE [None]
  - PANCYTOPENIA [None]
  - PYREXIA [None]
  - TOXIC EPIDERMAL NECROLYSIS [None]
